FAERS Safety Report 21769988 (Version 1)
Quarter: 2022Q4

REPORT INFORMATION
  Report Type: Spontaneous
  Country: SE (occurrence: SE)
  Receive Date: 20221223
  Receipt Date: 20221223
  Transmission Date: 20230113
  Serious: Yes (Other)
  Sender: FDA-Public Use
  Company Number: None

PATIENT
  Sex: Female

DRUGS (2)
  1. ZOLPIDEM [Suspect]
     Active Substance: ZOLPIDEM TARTRATE
     Indication: Product used for unknown indication
     Dosage: UNIT DOSE: 150 MG , FREQUENCY TIME : 1 TOTAL
     Dates: start: 20210925, end: 20210925
  2. LISDEXAMFETAMINE DIMESYLATE [Suspect]
     Active Substance: LISDEXAMFETAMINE DIMESYLATE
     Indication: Product used for unknown indication
     Dosage: ELVANSE 50 MG AT WORST 30 CAPSULES, FREQUENCY TIME : 1 TOTAL
     Dates: start: 20210925, end: 20210925

REACTIONS (3)
  - Intentional self-injury [Unknown]
  - Intentional overdose [Unknown]
  - Suicide attempt [Unknown]

NARRATIVE: CASE EVENT DATE: 20210925
